FAERS Safety Report 5515887-9 (Version None)
Quarter: 2007Q4

REPORT INFORMATION
  Report Type: 
  Country: None (occurrence: None)
  Receive Date: 20071109
  Receipt Date: 20071029
  Transmission Date: 20080405
  Serious: Yes (Hospitalization, Other)
  Sender: FDA-Public Use
  Company Number: GXKR2007JP09322

PATIENT
  Age: 1 Year
  Sex: Female

DRUGS (3)
  1. PREDNISONE [Suspect]
     Indication: IMMUNOSUPPRESSION
  2. TACROLIMUS [Suspect]
     Indication: IMMUNOSUPPRESSION
  3. ACYCLOVIR [Concomitant]

REACTIONS (10)
  - C-REACTIVE PROTEIN INCREASED [None]
  - DIARRHOEA [None]
  - DIFFUSE LARGE B-CELL LYMPHOMA STAGE IV [None]
  - LYMPHADENOPATHY [None]
  - LYMPHOPROLIFERATIVE DISORDER [None]
  - MUCOSAL ULCERATION [None]
  - PERITONITIS [None]
  - PYREXIA [None]
  - SMALL INTESTINAL PERFORATION [None]
  - VIRAL DNA TEST POSITIVE [None]
